FAERS Safety Report 18994097 (Version 4)
Quarter: 2021Q2

REPORT INFORMATION
  Report Type: Report from Study
  Country: US (occurrence: US)
  Receive Date: 20210310
  Receipt Date: 20210429
  Transmission Date: 20210717
  Serious: Yes (Disabling)
  Sender: FDA-Public Use
  Company Number: US-ORGANON-O2103USA000172

PATIENT
  Age: 24 Year
  Sex: Female
  Weight: 73.92 kg

DRUGS (4)
  1. NEXPLANON [Suspect]
     Active Substance: ETONOGESTREL
     Indication: CONTRACEPTION
     Dosage: 1 IMPLANT, EVERY THREE YEARS; INSERTION SITE: LEFT ARM (REPORTED AS ^NON?DOMINANT ARM^)
     Route: 059
     Dates: start: 20180119, end: 201812
  2. PRISTIQ EXTENDED?RELEASE [Concomitant]
     Active Substance: DESVENLAFAXINE SUCCINATE
     Dosage: UNK
  3. IMPLANON [Suspect]
     Active Substance: ETONOGESTREL
     Indication: CONTRACEPTION
     Dosage: IMPLANT, EVERY THREE YEARS (STRENGTH 68 MG); INSERTION SITE: LEFT UPPER ARM
     Route: 059
     Dates: start: 20200827, end: 20201106
  4. LEVOTHYROXINE. [Concomitant]
     Active Substance: LEVOTHYROXINE
     Dosage: UNK

REACTIONS (10)
  - Hypokinesia [Recovered/Resolved]
  - Hypoaesthesia [Unknown]
  - Nerve injury [Recovered/Resolved]
  - Pain in extremity [Recovered/Resolved]
  - Paraesthesia [Recovered/Resolved]
  - Pain [Unknown]
  - Pain [Recovered/Resolved]
  - Menstruation irregular [Recovered/Resolved]
  - Neuralgia [Recovered/Resolved]
  - Device placement issue [Recovered/Resolved]

NARRATIVE: CASE EVENT DATE: 2018
